FAERS Safety Report 6160744-0 (Version None)
Quarter: 2009Q2

REPORT INFORMATION
  Report Type: 
  Country: None (occurrence: None)
  Receive Date: 20090420
  Receipt Date: 20090419
  Transmission Date: 20091009
  Serious: Yes (Other)
  Sender: FDA-Public Use
  Company Number: US-PFIZER INC-2009176964

PATIENT
  Sex: Female
  Weight: 63.492 kg

DRUGS (4)
  1. CELEBREX [Suspect]
     Indication: ARTHRITIS
     Dates: start: 20040801, end: 20040101
  2. PROPYLTHIOURACIL [Concomitant]
     Dates: end: 20040101
  3. WELLBUTRIN XL [Concomitant]
  4. LORTAB [Concomitant]

REACTIONS (7)
  - ARTHRALGIA [None]
  - BURNING SENSATION [None]
  - INTERVERTEBRAL DISC COMPRESSION [None]
  - JOINT SWELLING [None]
  - OEDEMA PERIPHERAL [None]
  - THYROIDECTOMY [None]
  - VASCULITIS NECROTISING [None]
